FAERS Safety Report 5455625-1 (Version None)
Quarter: 2007Q3

REPORT INFORMATION
  Report Type: 
  Country: None (occurrence: None)
  Receive Date: 20070914
  Receipt Date: 20070907
  Transmission Date: 20080115
  Serious: Yes (Other)
  Sender: FDA-Public Use
  Company Number: 2007SP018059

PATIENT
  Age: 42 Year
  Sex: Female
  Weight: 75.2971 kg

DRUGS (2)
  1. PEG-INTRON [Suspect]
     Indication: HEPATITIS C
     Dosage: SC
     Route: 058
  2. REBETOL [Suspect]
     Indication: HEPATITIS C
     Dosage: PO
     Route: 048

REACTIONS (10)
  - ABDOMINAL PAIN UPPER [None]
  - DRY MOUTH [None]
  - FALL [None]
  - HAEMATEMESIS [None]
  - JOINT INJURY [None]
  - JOINT SPRAIN [None]
  - LOSS OF CONSCIOUSNESS [None]
  - VOMITING [None]
  - WEIGHT DECREASED [None]
  - WEIGHT FLUCTUATION [None]
